FAERS Safety Report 15866571 (Version 2)
Quarter: 2019Q2

REPORT INFORMATION
  Report Type: Spontaneous
  Country: US (occurrence: US)
  Receive Date: 20190125
  Receipt Date: 20190422
  Transmission Date: 20190711
  Serious: Yes (Death, Life-Threatening, Hospitalization, Other)
  Sender: FDA-Public Use
  Company Number: US-BRISTOL-MYERS SQUIBB COMPANY-BMS-2019-006252

PATIENT
  Age: 68 Year
  Sex: Female

DRUGS (2)
  1. OPDIVO [Suspect]
     Active Substance: NIVOLUMAB
     Indication: METASTATIC MALIGNANT MELANOMA
     Dosage: 480 MG, Q4WK
     Route: 042
     Dates: start: 20180613
  2. ESCITALOPRAM [Concomitant]
     Active Substance: ESCITALOPRAM OXALATE
     Indication: PRODUCT USED FOR UNKNOWN INDICATION
     Dosage: 10 MG, UNK
     Route: 048

REACTIONS (17)
  - Immune-mediated hepatitis [Unknown]
  - Renal impairment [Unknown]
  - Coagulopathy [Unknown]
  - Haemolysis [Unknown]
  - Fatigue [Unknown]
  - Post procedural haemorrhage [Unknown]
  - Pyrexia [Unknown]
  - Viral infection [Unknown]
  - Decreased appetite [Unknown]
  - Chromaturia [Unknown]
  - Night sweats [Unknown]
  - Pallor [Unknown]
  - Autoimmune pancytopenia [Unknown]
  - Splenomegaly [Unknown]
  - Tremor [Unknown]
  - Death [Fatal]
  - Nausea [Unknown]

NARRATIVE: CASE EVENT DATE: 201812
